FAERS Safety Report 23989729 (Version 1)
Quarter: 2024Q2

REPORT INFORMATION
  Report Type: Report from Study
  Country: FR (occurrence: FR)
  Receive Date: 20240619
  Receipt Date: 20240619
  Transmission Date: 20240716
  Serious: Yes (Other)
  Sender: FDA-Public Use
  Company Number: FR-AstraZeneca-2024A128915

PATIENT
  Age: 667 Month
  Sex: Male
  Weight: 115 kg

DRUGS (3)
  1. GEMCITABINE HYDROCHLORIDE [Suspect]
     Active Substance: GEMCITABINE HYDROCHLORIDE
     Indication: HER2 positive biliary tract cancer
     Dosage: UNK
     Dates: start: 20240419
  2. IMFINZI [Suspect]
     Active Substance: DURVALUMAB
     Indication: HER2 positive biliary tract cancer
     Dosage: 1500 MG
     Route: 042
     Dates: start: 20240419
  3. CISPLATIN [Suspect]
     Active Substance: CISPLATIN
     Indication: HER2 positive biliary tract cancer
     Dosage: UNK
     Dates: start: 20240419

REACTIONS (3)
  - Thrombocytopenia [Unknown]
  - Toxicity to various agents [Unknown]
  - Rash [Unknown]

NARRATIVE: CASE EVENT DATE: 20240513
